FAERS Safety Report 8288169-2 (Version None)
Quarter: 2012Q2

REPORT INFORMATION
  Report Type: 
  Country: None (occurrence: None)
  Receive Date: 20120416
  Receipt Date: 20120412
  Transmission Date: 20120825
  Serious: Yes (Other)
  Sender: FDA-Public Use
  Company Number: US-GILEAD-2012-0052018

PATIENT
  Sex: Male

DRUGS (4)
  1. AZATHIOPRINE [Suspect]
  2. LETAIRIS [Suspect]
     Indication: PULMONARY HYPERTENSION
     Dosage: 10 MG, UNK
     Route: 048
     Dates: start: 20101011, end: 20120309
  3. LETAIRIS [Suspect]
     Indication: PULMONARY FIBROSIS
  4. ATORVASTATIN [Suspect]

REACTIONS (3)
  - CRYPTOGENIC CIRRHOSIS [None]
  - HEPATIC STEATOSIS [None]
  - VIRAL INFECTION [None]
